FAERS Safety Report 21842770 (Version 5)
Quarter: 2025Q1

REPORT INFORMATION
  Report Type: Spontaneous
  Country: US (occurrence: US)
  Receive Date: 20230110
  Receipt Date: 20250219
  Transmission Date: 20250408
  Serious: No
  Sender: PFIZER
  Company Number: US-PFIZER INC-202300005772

PATIENT
  Age: 70 Year
  Sex: Female
  Weight: 56.7 kg

DRUGS (4)
  1. PREMARIN [Suspect]
     Active Substance: ESTROGENS, CONJUGATED
     Indication: Atrophic vulvovaginitis
     Dosage: UNK, 2X/WEEK
  2. PREMARIN [Suspect]
     Active Substance: ESTROGENS, CONJUGATED
     Indication: Vulvovaginal dryness
     Dosage: UNK 2X/WEEK
     Route: 067
     Dates: start: 2022
  3. PREMARIN [Suspect]
     Active Substance: ESTROGENS, CONJUGATED
  4. EFFEXOR [Concomitant]
     Active Substance: VENLAFAXINE HYDROCHLORIDE
     Dosage: 37.5 MG, DAILY
     Route: 048

REACTIONS (7)
  - Influenza [Unknown]
  - Myalgia [Unknown]
  - Bronchitis [Unknown]
  - Sinusitis [Unknown]
  - Cystitis [Unknown]
  - Injury [Unknown]
  - Product prescribing error [Unknown]
